FAERS Safety Report 4650805-7 (Version None)
Quarter: 2005Q2

REPORT INFORMATION
  Report Type: 
  Country: None (occurrence: None)
  Receive Date: 20050503
  Receipt Date: 20050425
  Transmission Date: 20051028
  Serious: Yes (Other)
  Sender: FDA-Public Use
  Company Number: NL-GLAXOSMITHKLINE-B0379411A

PATIENT
  Age: 57 Year
  Sex: Male
  Weight: 90 kg

DRUGS (2)
  1. ROPINIROLE [Suspect]
     Indication: DRUG USE FOR UNKNOWN INDICATION
     Dosage: 1.75MG THREE TIMES PER DAY
     Route: 065
     Dates: start: 20041111
  2. SINEMET [Concomitant]
     Indication: DRUG USE FOR UNKNOWN INDICATION
     Route: 065

REACTIONS (3)
  - DYSARTHRIA [None]
  - SPEECH DISORDER [None]
  - TONGUE DISORDER [None]
